FAERS Safety Report 5533120-9 (Version None)
Quarter: 2007Q4

REPORT INFORMATION
  Report Type: 
  Country: None (occurrence: None)
  Receive Date: 20071204
  Receipt Date: 20071108
  Transmission Date: 20080405
  Serious: Yes (Hospitalization)
  Sender: FDA-Public Use
  Company Number: JP-AVENTIS-200713043JP

PATIENT
  Age: 46 Year
  Sex: Male

DRUGS (5)
  1. LANTUS [Suspect]
     Dosage: DOSE: 6 UNITS
     Route: 058
     Dates: start: 20071019
  2. NOVOLIN R [Suspect]
     Dates: start: 20071013
  3. NOVOLIN N [Suspect]
     Dates: start: 20071013
  4. MONEDAX [Concomitant]
     Route: 048
     Dates: start: 20071023
  5. PASETOCIN                          /00249601/ [Concomitant]
     Route: 048
     Dates: start: 20071031, end: 20071105

REACTIONS (1)
  - HEPATIC FUNCTION ABNORMAL [None]
